FAERS Safety Report 18299708 (Version 1)
Quarter: 2020Q3

REPORT INFORMATION
  Report Type: Spontaneous
  Country: CA (occurrence: CA)
  Receive Date: 20200922
  Receipt Date: 20200922
  Transmission Date: 20201103
  Serious: Yes (Hospitalization, Other)
  Sender: FDA-Public Use
  Company Number: CA-PURDUE-USA-2020-0167433

PATIENT
  Age: 26 Year
  Sex: Male

DRUGS (2)
  1. HYDROMORPHONE HCL (SIMILAR TO 19?892) [Suspect]
     Active Substance: HYDROMORPHONE HYDROCHLORIDE
     Indication: DRUG ABUSE
     Dosage: UNK
     Route: 065
  2. METHAMPHETAMINE [Suspect]
     Active Substance: METHAMPHETAMINE
     Indication: DRUG ABUSE
     Dosage: UNK
     Route: 051

REACTIONS (4)
  - Substance abuse [Recovered/Resolved]
  - Abnormal behaviour [Recovered/Resolved]
  - Overdose [Recovered/Resolved]
  - Hallucination, auditory [Recovered/Resolved]
